FAERS Safety Report 4596076-1 (Version None)
Quarter: 2005Q1

REPORT INFORMATION
  Report Type: 
  Country: None (occurrence: None)
  Receive Date: 20050225
  Receipt Date: 20050217
  Transmission Date: 20050727
  Serious: No
  Sender: FDA-Public Use
  Company Number: 2005-125400-NL

PATIENT
  Age: 46 Year
  Sex: Male

DRUGS (1)
  1. VECURONIUM [Suspect]
     Indication: MUSCLE RELAXANT THERAPY
     Dosage: 9 MG ONCE
     Dates: start: 20030301

REACTIONS (2)
  - DELAYED RECOVERY FROM ANAESTHESIA [None]
  - LUNG DISORDER [None]
